FAERS Safety Report 15229695 (Version 1)
Quarter: 2018Q3

REPORT INFORMATION
  Report Type: Spontaneous
  Country: US (occurrence: US)
  Receive Date: 20180802
  Receipt Date: 20180802
  Transmission Date: 20181010
  Serious: Yes (Other)
  Sender: FDA-Public Use
  Company Number: US-BRISTOL-MYERS SQUIBB COMPANY-BMS-2018-070380

PATIENT
  Sex: Male

DRUGS (1)
  1. ELIQUIS [Suspect]
     Active Substance: APIXABAN
     Indication: DEEP VEIN THROMBOSIS
     Dosage: UNAVAILABLE
     Route: 065

REACTIONS (7)
  - Bladder cancer [Unknown]
  - Haemorrhage [Unknown]
  - Acne [Unknown]
  - Asthenia [Unknown]
  - Fall [Unknown]
  - Blood urine present [Unknown]
  - Joint injury [Unknown]
